FAERS Safety Report 26094123 (Version 1)
Quarter: 2025Q4

REPORT INFORMATION
  Report Type: Spontaneous
  Country: EU (occurrence: EU)
  Receive Date: 20251126
  Receipt Date: 20251126
  Transmission Date: 20260117
  Serious: Yes (Hospitalization)
  Sender: MYLAN
  Company Number: None

PATIENT
  Age: 62 Year
  Sex: Male
  Weight: 93.5 kg

DRUGS (8)
  1. ALPRAZOLAM [Suspect]
     Active Substance: ALPRAZOLAM
     Indication: Poisoning deliberate
     Dosage: 65 DOSAGE FORM, TOTAL, 0.5 MG X 60 CP
     Dates: start: 20251020, end: 20251020
  2. ALPRAZOLAM [Suspect]
     Active Substance: ALPRAZOLAM
     Dosage: 65 DOSAGE FORM, TOTAL, 0.5 MG X 60 CP
     Route: 048
     Dates: start: 20251020, end: 20251020
  3. ALPRAZOLAM [Suspect]
     Active Substance: ALPRAZOLAM
     Dosage: 65 DOSAGE FORM, TOTAL, 0.5 MG X 60 CP
     Route: 048
     Dates: start: 20251020, end: 20251020
  4. ALPRAZOLAM [Suspect]
     Active Substance: ALPRAZOLAM
     Dosage: 65 DOSAGE FORM, TOTAL, 0.5 MG X 60 CP
     Dates: start: 20251020, end: 20251020
  5. ETHYL ALCOHOL [Suspect]
     Active Substance: ALCOHOL
     Indication: Alcohol poisoning
     Dosage: 500 MILLILITER, TOTAL
     Dates: start: 20251020, end: 20251020
  6. ETHYL ALCOHOL [Suspect]
     Active Substance: ALCOHOL
     Dosage: 500 MILLILITER, TOTAL
     Route: 048
     Dates: start: 20251020, end: 20251020
  7. ETHYL ALCOHOL [Suspect]
     Active Substance: ALCOHOL
     Dosage: 500 MILLILITER, TOTAL
     Route: 048
     Dates: start: 20251020, end: 20251020
  8. ETHYL ALCOHOL [Suspect]
     Active Substance: ALCOHOL
     Dosage: 500 MILLILITER, TOTAL
     Dates: start: 20251020, end: 20251020

REACTIONS (3)
  - Poisoning deliberate [Recovered/Resolved]
  - Coma [Recovered/Resolved]
  - Respiratory depression [Recovered/Resolved]

NARRATIVE: CASE EVENT DATE: 20251020
